FAERS Safety Report 11226359 (Version 1)
Quarter: 2015Q2

REPORT INFORMATION
  Report Type: Spontaneous
  Country: None (occurrence: FR)
  Receive Date: 20150629
  Receipt Date: 20150629
  Transmission Date: 20150821
  Serious: Yes (Life-Threatening, Hospitalization, Disabling)
  Sender: FDA-Public Use
  Company Number: FR-MEDAC PHARMA, INC.-1040254

PATIENT
  Age: 47 Year
  Sex: Female

DRUGS (29)
  1. RIFINAH [Suspect]
     Active Substance: ISONIAZID\RIFAMPIN
     Route: 048
     Dates: start: 2012
  2. SOLUPRED [Concomitant]
     Active Substance: PREDNISOLONE
  3. FERROUS SULFATE [Concomitant]
     Active Substance: FERROUS SULFATE\FERROUS SULFATE, DRIED
  4. SERETIDE [Suspect]
     Active Substance: FLUTICASONE FUROATE\SALMETEROL XINAFOATE
     Route: 055
     Dates: start: 201307, end: 201501
  5. SYMBICORT [Suspect]
     Active Substance: BUDESONIDE\FORMOTEROL FUMARATE DIHYDRATE
     Dates: start: 201205, end: 201307
  6. CIMZIA [Suspect]
     Active Substance: CERTOLIZUMAB PEGOL
     Route: 042
     Dates: start: 201207, end: 20130723
  7. PANTOPRAZOLE [Suspect]
     Active Substance: PANTOPRAZOLE SODIUM
     Route: 048
     Dates: start: 201308, end: 201501
  8. CEFPODOXIME PROXETIL. [Concomitant]
     Active Substance: CEFPODOXIME PROXETIL
     Dates: start: 20120316
  9. METHYLPREDNISOLONE SODIUM SUCCINATE. [Concomitant]
     Active Substance: METHYLPREDNISOLONE SODIUM SUCCINATE
     Dates: start: 201303
  10. METOJECT [Suspect]
     Active Substance: METHOTREXATE SODIUM
     Indication: RHEUMATOID ARTHRITIS
     Dates: start: 20120210, end: 20120309
  11. PREDNISONE. [Suspect]
     Active Substance: PREDNISONE
     Route: 048
     Dates: start: 201310, end: 201409
  12. TERBUTALINE SULFATE. [Concomitant]
     Active Substance: TERBUTALINE SULFATE
     Dates: start: 201203, end: 201205
  13. RULID [Concomitant]
     Active Substance: ROXITHROMYCIN
  14. IMETH (METHOTREXATE) [Suspect]
     Active Substance: METHOTREXATE
     Route: 048
     Dates: start: 20120502, end: 20121207
  15. MONTELUKAST [Concomitant]
     Active Substance: MONTELUKAST SODIUM
  16. ORENCIA [Suspect]
     Active Substance: ABATACEPT
     Route: 042
     Dates: start: 201310, end: 201409
  17. SULFASALAZINE. [Suspect]
     Active Substance: SULFASALAZINE
     Route: 048
     Dates: start: 20130723, end: 201308
  18. SOLUPRED [Concomitant]
     Active Substance: PREDNISOLONE
     Dates: start: 20120316
  19. XENETIX [Concomitant]
     Active Substance: IOBITRIDOL
     Dates: start: 2013
  20. CETIRIZINE HYDROCHLORIDE. [Suspect]
     Active Substance: CETIRIZINE HYDROCHLORIDE
     Route: 048
     Dates: start: 201310, end: 201501
  21. ZAMUDOL [Suspect]
     Active Substance: TRAMADOL HYDROCHLORIDE
     Route: 048
     Dates: start: 201310
  22. ZOLPIDEM TARTRATE. [Suspect]
     Active Substance: ZOLPIDEM TARTRATE
     Route: 048
     Dates: start: 201310, end: 201501
  23. DOLIPRANE [Suspect]
     Active Substance: ACETAMINOPHEN
     Route: 048
     Dates: start: 201310
  24. PROCAINE [Concomitant]
     Active Substance: PROCAINE
  25. ZOFORA [Concomitant]
  26. ATROVENT [Concomitant]
     Active Substance: IPRATROPIUM BROMIDE
     Dates: start: 201203, end: 201205
  27. ROCEPHIN [Concomitant]
     Active Substance: CEFTRIAXONE SODIUM
     Dates: start: 201303
  28. ARAVA [Suspect]
     Active Substance: LEFLUNOMIDE
     Route: 048
     Dates: start: 201310, end: 201501
  29. CALCITONIN SALMON. [Concomitant]
     Active Substance: CALCITONIN SALMON

REACTIONS (21)
  - Gastric ulcer [None]
  - Gastrooesophageal reflux disease [None]
  - Lymphadenopathy mediastinal [None]
  - Bronchiectasis [None]
  - Rheumatoid arthritis [None]
  - Thrombocytosis [None]
  - Bundle branch block left [None]
  - Sjogren^s syndrome [None]
  - Ventricular hyperkinesia [Not Recovered/Not Resolved]
  - Pulmonary mass [None]
  - Cardiomegaly [None]
  - Pleural effusion [None]
  - Drug ineffective [None]
  - Lung infection [None]
  - Cardiac failure [Not Recovered/Not Resolved]
  - Allergic granulomatous angiitis [None]
  - Bundle branch block [None]
  - Anaphylactic shock [None]
  - Microcytic anaemia [None]
  - Antimitochondrial antibody positive [None]
  - Antineutrophil cytoplasmic antibody positive [None]

NARRATIVE: CASE EVENT DATE: 20150219
